FAERS Safety Report 4937765-6 (Version None)
Quarter: 2006Q1

REPORT INFORMATION
  Report Type: 
  Country: None (occurrence: None)
  Receive Date: 20060309
  Receipt Date: 20060228
  Transmission Date: 20060701
  Serious: Yes (Hospitalization)
  Sender: FDA-Public Use
  Company Number: AU-ROCHE-438402

PATIENT
  Age: 65 Year
  Sex: Male

DRUGS (5)
  1. DUCENE [Suspect]
     Indication: DRUG USE FOR UNKNOWN INDICATION
     Route: 065
     Dates: end: 20050405
  2. AVAPRO [Suspect]
     Indication: DRUG USE FOR UNKNOWN INDICATION
     Route: 065
     Dates: end: 20050405
  3. DIAFORMIN [Suspect]
     Indication: DRUG USE FOR UNKNOWN INDICATION
     Route: 048
     Dates: end: 20050405
  4. NORVASC [Concomitant]
     Route: 048
  5. AMARYL [Concomitant]

REACTIONS (1)
  - ANGIONEUROTIC OEDEMA [None]
